FAERS Safety Report 5620818-7 (Version None)
Quarter: 2008Q1

REPORT INFORMATION
  Report Type: 
  Country: None (occurrence: None)
  Receive Date: 20080208
  Receipt Date: 20080130
  Transmission Date: 20080703
  Serious: Yes (Other)
  Sender: FDA-Public Use
  Company Number: US-PFIZER INC-2008009792

PATIENT
  Sex: Male
  Weight: 68.181 kg

DRUGS (3)
  1. CHANTIX [Suspect]
     Indication: SMOKING CESSATION THERAPY
     Dates: start: 20071001, end: 20071101
  2. ADVAIR DISKUS 100/50 [Concomitant]
  3. PRIMATENE MIST [Concomitant]

REACTIONS (1)
  - DYSPNOEA [None]
